FAERS Safety Report 7666637-1 (Version None)
Quarter: 2011Q3

REPORT INFORMATION
  Report Type: 
  Country: None (occurrence: None)
  Receive Date: 20110806
  Receipt Date: 20110330
  Transmission Date: 20111222
  Serious: No
  Sender: FDA-Public Use
  Company Number: US-ABBOTT-11P-163-0715481-00

PATIENT
  Sex: Female
  Weight: 54.48 kg

DRUGS (3)
  1. DIGOXIN [Concomitant]
     Indication: CARDIAC DISORDER
  2. NIASPAN [Suspect]
     Indication: BLOOD CHOLESTEROL
     Dates: start: 20110329
  3. ATENOLOL [Concomitant]
     Indication: CARDIAC DISORDER

REACTIONS (3)
  - CHEST PAIN [None]
  - DIARRHOEA [None]
  - NAUSEA [None]
